FAERS Safety Report 12729604 (Version 1)
Quarter: 2016Q3

REPORT INFORMATION
  Report Type: Spontaneous
  Country: FR (occurrence: FR)
  Receive Date: 20160909
  Receipt Date: 20160909
  Transmission Date: 20161109
  Serious: Yes (Death, Life-Threatening, Hospitalization)
  Sender: FDA-Public Use
  Company Number: FR-MYLANLABS-2016M1038163

PATIENT

DRUGS (1)
  1. FONDAPARINUX [Suspect]
     Active Substance: FONDAPARINUX
     Indication: ATRIAL FIBRILLATION
     Dosage: UNK
     Route: 058
     Dates: start: 201603, end: 20160625

REACTIONS (4)
  - Melaena [Fatal]
  - Off label use [Not Recovered/Not Resolved]
  - Haematoma [Fatal]
  - Anaemia [Unknown]

NARRATIVE: CASE EVENT DATE: 201603
